FAERS Safety Report 23327878 (Version 1)
Quarter: 2023Q4

REPORT INFORMATION
  Report Type: Spontaneous
  Country: US (occurrence: US)
  Receive Date: 20231221
  Receipt Date: 20231221
  Transmission Date: 20240110
  Serious: No
  Sender: FDA-Public Use
  Company Number: US-GE HEALTHCARE-2023CSU009750

PATIENT
  Age: 58 Year
  Sex: Male
  Weight: 111.57 kg

DRUGS (14)
  1. OPTISON [Suspect]
     Active Substance: HUMAN ALBUMIN MICROSPHERES\PERFLUTREN
     Indication: Echocardiogram
     Dosage: 1 ML, SINGLE
     Route: 042
     Dates: start: 20231027, end: 20231027
  2. OPTISON [Suspect]
     Active Substance: HUMAN ALBUMIN MICROSPHERES\PERFLUTREN
     Indication: Hypertension
  3. OPTISON [Suspect]
     Active Substance: HUMAN ALBUMIN MICROSPHERES\PERFLUTREN
     Indication: Palpitations
  4. OPTISON [Suspect]
     Active Substance: HUMAN ALBUMIN MICROSPHERES\PERFLUTREN
     Indication: Ventricular extrasystoles
  5. SALINE [Concomitant]
     Active Substance: SODIUM CHLORIDE
     Dosage: 3 ML
     Dates: start: 20231027, end: 20231027
  6. FENOFIBRATE [Concomitant]
     Active Substance: FENOFIBRATE
     Route: 048
  7. FARXIGA [Concomitant]
     Active Substance: DAPAGLIFLOZIN PROPANEDIOL
     Route: 048
  8. TOPROL XL [Concomitant]
     Active Substance: METOPROLOL SUCCINATE
     Dosage: 50 MG
     Route: 048
  9. XALATAN [Concomitant]
     Active Substance: LATANOPROST
     Dosage: 0.005% 1 DROP NIGHTLY
     Route: 050
  10. PRILOSEC [Concomitant]
     Active Substance: OMEPRAZOLE MAGNESIUM
     Dosage: 40 MG
     Route: 048
  11. ACTOS [Concomitant]
     Active Substance: PIOGLITAZONE HYDROCHLORIDE
     Dosage: 15 MG
     Route: 048
  12. TRILIPIX [Concomitant]
     Active Substance: FENOFIBRIC ACID
     Dosage: 135 MG
     Route: 048
  13. CRESTOR [Concomitant]
     Active Substance: ROSUVASTATIN CALCIUM
     Dosage: 10 MG
     Route: 048
  14. AMBIEN CR [Concomitant]
     Active Substance: ZOLPIDEM TARTRATE
     Dosage: UNK

REACTIONS (2)
  - Anxiety [Recovered/Resolved]
  - Feeling hot [Recovered/Resolved]

NARRATIVE: CASE EVENT DATE: 20231027
